FAERS Safety Report 7987118-1 (Version None)
Quarter: 2011Q4

REPORT INFORMATION
  Report Type: 
  Country: None (occurrence: None)
  Receive Date: 20111216
  Receipt Date: 20110316
  Transmission Date: 20120403
  Serious: No
  Sender: FDA-Public Use
  Company Number: US-BRISTOL-MYERS SQUIBB COMPANY-15615594

PATIENT
  Age: 3 Decade
  Sex: Female

DRUGS (2)
  1. ZOLOFT [Suspect]
  2. ABILIFY [Suspect]
     Indication: MAJOR DEPRESSION
     Dosage: INTERRUPTED AND RESTARTED

REACTIONS (1)
  - PRURITUS GENERALISED [None]
